FAERS Safety Report 6788017-3 (Version None)
Quarter: 2010Q2

REPORT INFORMATION
  Report Type: 
  Country: None (occurrence: None)
  Receive Date: 20100623
  Receipt Date: 20080110
  Transmission Date: 20101027
  Serious: No
  Sender: FDA-Public Use
  Company Number: US-PFIZER INC-2007084643

PATIENT
  Sex: Male
  Weight: 80.29 kg

DRUGS (17)
  1. EMCYT [Suspect]
     Indication: PROSTATE CANCER
     Route: 048
     Dates: start: 20070827
  2. LISINOPRIL [Concomitant]
  3. OMEPRAZOLE [Concomitant]
  4. CATAFLAM [Concomitant]
  5. ACYCLOVIR [Concomitant]
  6. CHLOR-TRIMETON [Concomitant]
  7. LIPITOR [Concomitant]
  8. CALCIUM CARBONATE [Concomitant]
  9. MAGNESIUM [Concomitant]
     Indication: METASTASES TO BONE
  10. ZOMETA [Concomitant]
     Indication: BONE DISORDER
     Route: 042
  11. EVISTA [Concomitant]
  12. TAXOTERE [Concomitant]
     Route: 042
  13. LEUPROLIDE ACETATE [Concomitant]
  14. EPOGEN [Concomitant]
     Dosage: 2 EVERY 1 MONTHS
     Route: 048
  15. DECADRON [Concomitant]
     Route: 042
  16. DECADRON [Concomitant]
  17. PREDNISONE [Concomitant]

REACTIONS (6)
  - CONSTIPATION [None]
  - DECREASED APPETITE [None]
  - DYSPHAGIA [None]
  - GASTROINTESTINAL PAIN [None]
  - NAUSEA [None]
  - WEIGHT DECREASED [None]
